FAERS Safety Report 9284015 (Version 1)
Quarter: 2013Q2

REPORT INFORMATION
  Report Type: Spontaneous
  Country: IT (occurrence: IT)
  Receive Date: 20130510
  Receipt Date: 20130510
  Transmission Date: 20140414
  Serious: Yes (Hospitalization)
  Sender: FDA-Public Use
  Company Number: PHHY2013IT046352

PATIENT
  Age: 45 Year
  Sex: Female

DRUGS (6)
  1. TRAMADOL [Suspect]
     Indication: SELF INJURIOUS BEHAVIOUR
     Dosage: 15 OT, TOTAL
     Route: 048
     Dates: start: 20130408, end: 20130408
  2. NOZINAN /NET/ [Suspect]
     Indication: SELF INJURIOUS BEHAVIOUR
     Dosage: 15 DF, TOTAL
     Route: 048
     Dates: start: 20130408, end: 20130408
  3. RIVOTRIL [Concomitant]
     Indication: PERSONALITY DISORDER
     Route: 048
  4. TRITTICO [Concomitant]
     Indication: PERSONALITY DISORDER
  5. TAVOR//LORAZEPAM [Concomitant]
  6. CITALOPRAM [Concomitant]
     Indication: PERSONALITY DISORDER

REACTIONS (3)
  - Sopor [Recovered/Resolved]
  - Self injurious behaviour [Recovered/Resolved]
  - Grand mal convulsion [Recovered/Resolved]
